FAERS Safety Report 23605619 (Version 2)
Quarter: 2024Q2

REPORT INFORMATION
  Report Type: Spontaneous
  Country: US (occurrence: US)
  Receive Date: 20240307
  Receipt Date: 20240605
  Transmission Date: 20240716
  Serious: Yes (Other)
  Sender: FDA-Public Use
  Company Number: US-REGENERON PHARMACEUTICALS, INC.-2024-033103

PATIENT

DRUGS (2)
  1. EYLEA HD [Suspect]
     Active Substance: AFLIBERCEPT
     Indication: Product used for unknown indication
     Dosage: UNK, MONTHLY, FORMULATION: HD VIAL
  2. EYLEA HD [Suspect]
     Active Substance: AFLIBERCEPT
     Dosage: UNK, 8-WEEK, FORMULATION: HD VIAL

REACTIONS (3)
  - Retinal pigment epithelial tear [Unknown]
  - Visual impairment [Unknown]
  - Drug ineffective [Unknown]
